FAERS Safety Report 9748820 (Version 3)
Quarter: 2014Q2

REPORT INFORMATION
  Report Type: Spontaneous
  Country: US (occurrence: US)
  Receive Date: 20131212
  Receipt Date: 20140611
  Transmission Date: 20141212
  Serious: No
  Sender: FDA-Public Use
  Company Number: US-INCYTE CORPORATION-2013IN001486

PATIENT
  Age: 85 Year
  Sex: Female
  Weight: 70.75 kg

DRUGS (16)
  1. JAKAFI [Suspect]
     Indication: MYELOFIBROSIS
     Dosage: 10 MG TABLET ALTERNATING WITH TWO TABLETS (20 MG) EVERY OTHER DAY
     Route: 048
     Dates: start: 20130524
  2. JAKAFI [Suspect]
     Indication: SPLENOMEGALY
     Dosage: 20 MG, BID
     Route: 048
     Dates: start: 20130709, end: 20130725
  3. JAKAFI [Suspect]
     Dosage: 20 MG, QD
     Route: 048
     Dates: start: 20130726
  4. PRINIVIL [Concomitant]
  5. LASIX [Concomitant]
  6. KEFLEX [Concomitant]
  7. MAGNESIUM [Concomitant]
  8. TRAMADOL [Concomitant]
  9. ASCORBIC ACID [Concomitant]
  10. ASPIRIN [Concomitant]
  11. FLAXSEED OIL [Concomitant]
  12. TAURINE [Concomitant]
  13. ERGOCALCIFEROL [Concomitant]
  14. Q-10 CO-ENZYME [Concomitant]
  15. CENTRUM SILVER [Concomitant]
  16. ALLOPURINOL [Concomitant]

REACTIONS (14)
  - Epistaxis [Unknown]
  - Blood potassium increased [Unknown]
  - Postoperative wound infection [Unknown]
  - Oedema peripheral [Unknown]
  - Increased appetite [Unknown]
  - Arthralgia [Unknown]
  - Gait disturbance [Unknown]
  - Fatigue [Unknown]
  - Platelet count decreased [Unknown]
  - Haemoglobin decreased [Unknown]
  - Headache [Recovering/Resolving]
  - Weight increased [Unknown]
  - Contusion [Unknown]
  - Urinary tract infection [Unknown]
